FAERS Safety Report 5904259-0 (Version None)
Quarter: 2008Q4

REPORT INFORMATION
  Report Type: 
  Country: None (occurrence: None)
  Receive Date: 20081001
  Receipt Date: 20080930
  Transmission Date: 20090506
  Serious: Yes (Other)
  Sender: FDA-Public Use
  Company Number: US-BAYER-200829443NA

PATIENT
  Age: 77 Year
  Sex: Female
  Weight: 43 kg

DRUGS (7)
  1. AVELOX [Suspect]
     Indication: PNEUMONIA
     Dosage: TOTAL DAILY DOSE: 400 MG  UNIT DOSE: 400 MG
     Route: 048
     Dates: start: 20080728
  2. ACTONEL [Concomitant]
  3. ZOLOFT [Concomitant]
  4. SIMVASTATIN [Concomitant]
  5. HYZAAR [Concomitant]
  6. MESTINON [Concomitant]
  7. MYSOLINE [Concomitant]

REACTIONS (1)
  - ASTHMA [None]
